FAERS Safety Report 5009934-0 (Version None)
Quarter: 2006Q2

REPORT INFORMATION
  Report Type: 
  Country: None (occurrence: None)
  Receive Date: 20060522
  Receipt Date: 20060505
  Transmission Date: 20061013
  Serious: Yes (Other)
  Sender: FDA-Public Use
  Company Number: DSA_28174_2006

PATIENT
  Age: 62 Year
  Sex: Male

DRUGS (12)
  1. TEMESTA [Suspect]
     Indication: ANXIETY DISORDER
     Dosage: 1 DF PRN PO
     Route: 048
  2. CHLORALDURAT [Suspect]
     Indication: ANXIETY DISORDER
     Dosage: 250 MG BID PO
     Route: 048
  3. COMTAN [Suspect]
     Indication: PARKINSON'S DISEASE
     Dosage: 200 MG 5XD PO
     Route: 048
  4. DETRUSITOL /01350201/ [Suspect]
     Indication: URINARY INCONTINENCE
     Dosage: 4 MG QD PO
     Route: 048
  5. MADOPAR DR [Suspect]
     Indication: PARKINSON'S DISEASE
     Dosage: 1 DF 5XD PO
     Route: 048
  6. MADOPAR LIQ 62.5 [Suspect]
     Indication: PARKINSON'S DISEASE
     Dosage: 1 DF QD PO
     Route: 048
  7. REQUIP [Suspect]
     Indication: PARKINSON'S DISEASE
     Dosage: 2 MG QID PO
     Route: 048
  8. SEROQUEL [Suspect]
     Indication: HALLUCINATION
     Dosage: 150 MG QD PO
     Route: 048
     Dates: end: 20060307
  9. SEROQUEL [Suspect]
     Indication: HALLUCINATION
     Dosage: 100 MG BID PO
     Route: 048
     Dates: start: 20060308
  10. URISPAS [Concomitant]
  11. PROSCAR [Concomitant]
  12. HEPATODORON [Concomitant]

REACTIONS (5)
  - ANXIETY [None]
  - CHILLS [None]
  - CONDITION AGGRAVATED [None]
  - DRUG INTERACTION [None]
  - HALLUCINATION, VISUAL [None]
